FAERS Safety Report 6227021-0 (Version None)
Quarter: 2009Q2

REPORT INFORMATION
  Report Type: 
  Country: None (occurrence: None)
  Receive Date: 20090612
  Receipt Date: 20090605
  Transmission Date: 20091009
  Serious: Yes (Hospitalization, Other)
  Sender: FDA-Public Use
  Company Number: BR-BAYER-200916857LA

PATIENT
  Age: 38 Year
  Sex: Male
  Weight: 94 kg

DRUGS (18)
  1. SORAFENIB [Suspect]
     Indication: NON-SMALL CELL LUNG CANCER
     Dosage: TOTAL DAILY DOSE: 800 MG
     Route: 048
     Dates: start: 20090205, end: 20090415
  2. SORAFENIB [Suspect]
     Dosage: TOTAL DAILY DOSE: 400 MG
     Route: 048
     Dates: start: 20090416, end: 20090416
  3. SORAFENIB [Suspect]
     Dosage: TOTAL DAILY DOSE: 400 MG
     Route: 048
     Dates: start: 20090423, end: 20090528
  4. GEMCITABINE [Suspect]
     Indication: NON-SMALL CELL LUNG CANCER
     Dosage: UNIT DOSE: 1250 MG/M2
     Dates: start: 20090205, end: 20090205
  5. GEMCITABINE [Suspect]
     Dosage: UNIT DOSE: 1250 MG/M2
     Dates: start: 20090212, end: 20090212
  6. GEMCITABINE [Suspect]
     Dosage: UNIT DOSE: 1250 MG/M2
     Dates: start: 20090227, end: 20090227
  7. GEMCITABINE [Suspect]
     Dosage: UNIT DOSE: 1250 MG/M2
     Dates: start: 20090306, end: 20090306
  8. GEMCITABINE [Suspect]
     Dosage: UNIT DOSE: 1250 MG/M2
     Dates: start: 20090320, end: 20090320
  9. GEMCITABINE [Suspect]
     Dosage: UNIT DOSE: 1250 MG/M2
     Dates: start: 20090327, end: 20090327
  10. GEMCITABINE [Suspect]
     Dosage: UNIT DOSE: 1250 MG/M2
     Dates: start: 20090416, end: 20090416
  11. GEMCITABINE [Suspect]
     Dosage: UNIT DOSE: 1250 MG/M2
     Dates: start: 20090424, end: 20090424
  12. GEMCITABINE [Suspect]
     Dosage: UNIT DOSE: 1250 MG/M2
     Dates: start: 20090507, end: 20090507
  13. GEMCITABINE [Suspect]
     Dosage: UNIT DOSE: 1250 MG/M2
     Dates: start: 20090514, end: 20090514
  14. CISPLATIN [Suspect]
     Indication: NON-SMALL CELL LUNG CANCER
     Dosage: UNIT DOSE: 75 MG/M2
     Dates: start: 20090205, end: 20090205
  15. CISPLATIN [Suspect]
     Dosage: UNIT DOSE: 75 MG/M2
     Dates: start: 20090227, end: 20090227
  16. CISPLATIN [Suspect]
     Dosage: UNIT DOSE: 75 MG/M2
     Dates: start: 20090320, end: 20090320
  17. CISPLATIN [Suspect]
     Dosage: UNIT DOSE: 75 MG/M2
     Dates: start: 20090416, end: 20090416
  18. CISPLATIN [Suspect]
     Dosage: UNIT DOSE: 75 MG/M2
     Dates: start: 20090507, end: 20090507

REACTIONS (1)
  - CONVULSION [None]
